FAERS Safety Report 8177734-9 (Version None)
Quarter: 2012Q1

REPORT INFORMATION
  Report Type: 
  Country: None (occurrence: None)
  Receive Date: 20120301
  Receipt Date: 20120221
  Transmission Date: 20120608
  Serious: Yes (Hospitalization)
  Sender: FDA-Public Use
  Company Number: FR-BAYER-2012-000682

PATIENT
  Age: 86 Year
  Sex: Male

DRUGS (8)
  1. CIPROFLOXACIN [Suspect]
     Indication: CHOLECYSTITIS
     Dosage: DAILY DOSE 500 MG
     Route: 048
     Dates: start: 20110904, end: 20110921
  2. FLAGYL [Suspect]
     Indication: CHOLECYSTITIS
     Dosage: DAILY DOSE 500 MG
     Route: 042
     Dates: start: 20110828, end: 20110904
  3. SIMVASTATIN [Concomitant]
     Dosage: DAILY DOSE 20 MG
     Route: 048
  4. PANTOPRAZOLE [Concomitant]
     Dosage: UNK
     Route: 048
  5. ROCEPHIN [Suspect]
     Indication: CHOLECYSTITIS
     Dosage: 1 G, QD
     Route: 042
     Dates: start: 20110823, end: 20110902
  6. LASIX [Concomitant]
     Dosage: UNK
     Route: 048
  7. VASTAREL [Concomitant]
     Dosage: UNK
     Route: 048
  8. ACETAMINOPHEN [Concomitant]
     Dosage: DAILY DOSE 40 MG
     Route: 048

REACTIONS (1)
  - CHOLESTASIS [None]
